FAERS Safety Report 21996045 (Version 3)
Quarter: 2023Q1

REPORT INFORMATION
  Report Type: Report from Study
  Country: IT (occurrence: IT)
  Receive Date: 20230215
  Receipt Date: 20230309
  Transmission Date: 20230418
  Serious: Yes (Hospitalization)
  Sender: FDA-Public Use
  Company Number: IT-ROCHE-3267406

PATIENT
  Age: 55 Year
  Sex: Female
  Weight: 92 kg

DRUGS (21)
  1. DOCETAXEL [Suspect]
     Active Substance: DOCETAXEL
     Indication: HER2 positive breast cancer
     Dosage: 147 MILLIGRAM, Q3W
     Route: 042
     Dates: start: 20171013, end: 20180125
  2. LETROZOLE [Suspect]
     Active Substance: LETROZOLE
     Indication: HER2 positive breast cancer
     Dosage: 2.5 MILLIGRAM, QD
     Route: 048
     Dates: start: 20180215, end: 20211013
  3. TRASTUZUMAB [Suspect]
     Active Substance: TRASTUZUMAB
     Indication: HER2 positive breast cancer
     Dosage: 672 MG (MOST RECENT DOSE PRIOR TO THE EVEN)
     Route: 042
     Dates: start: 20171013, end: 20171013
  4. ADO-TRASTUZUMAB EMTANSINE [Suspect]
     Active Substance: ADO-TRASTUZUMAB EMTANSINE
     Indication: HER2 positive breast cancer
     Dosage: 300 MILLIGRAM, Q3W (START DATE 21-OCT-2021)
     Route: 042
  5. PERTUZUMAB [Suspect]
     Active Substance: PERTUZUMAB
     Indication: HER2 positive breast cancer
     Dosage: 840 MG(MOST RECENT DOSE PRIOR TO THE EVE)
     Route: 042
     Dates: start: 20171012, end: 20171012
  6. BLACK COHOSH [Concomitant]
     Active Substance: BLACK COHOSH
     Dosage: UNK (ONGOING, CHECKED)
     Route: 065
     Dates: start: 20181004
  7. VALPROATE SODIUM [Concomitant]
     Active Substance: VALPROATE SODIUM
     Indication: Disorientation
     Dosage: UNK (ONGOING, CHECKED)
     Route: 065
     Dates: start: 20191015
  8. VALPROATE SODIUM [Concomitant]
     Active Substance: VALPROATE SODIUM
     Dosage: UNK (ONGOING, CHECKED)
     Route: 065
     Dates: start: 20200502
  9. PANTOPRAZOLE [Concomitant]
     Active Substance: PANTOPRAZOLE
     Indication: Cholecystitis
     Dosage: UNK (ONGOING, CHECKED)
     Route: 065
     Dates: start: 20211102
  10. TRIMETON [Concomitant]
     Active Substance: CHLORPHENIRAMINE MALEATE
     Dosage: UNK (ONGOING, CHECKED)
     Route: 065
     Dates: start: 20171012
  11. ACETAMINOPHEN [Concomitant]
     Active Substance: ACETAMINOPHEN
     Dosage: UNK (ONGOING, CHECKED)
     Route: 065
     Dates: start: 20171013
  12. Decapeptyl [Concomitant]
     Dosage: UNK (ONGOING, CHECKED)
     Route: 065
     Dates: start: 20190411
  13. DEXAMETHASONE [Concomitant]
     Active Substance: DEXAMETHASONE
     Dosage: UNK (ONGOING, CHECKED)
     Route: 065
     Dates: start: 20200109
  14. PIPERACILLIN SODIUM\TAZOBACTAM SODIUM [Concomitant]
     Active Substance: PIPERACILLIN SODIUM\TAZOBACTAM SODIUM
     Indication: Cholecystitis
     Dosage: UNK (ONGOING, CHECKED)
     Route: 065
     Dates: start: 20211102
  15. RAMIPRIL [Concomitant]
     Active Substance: RAMIPRIL
     Indication: Ejection fraction decreased
     Dosage: UNK (ONGOING, CHECKED)
     Route: 065
     Dates: start: 20190919
  16. ZOLEDRONIC ACID [Concomitant]
     Active Substance: ZOLEDRONIC ACID
     Dosage: UNK (ONGOING, CHECKED)
     Route: 065
     Dates: start: 20190228
  17. BISOPROLOL [Concomitant]
     Active Substance: BISOPROLOL
     Indication: Ejection fraction decreased
     Dosage: UNK (ONGOING, CHECKED)
     Route: 065
     Dates: start: 20190919
  18. KEPPRA [Concomitant]
     Active Substance: LEVETIRACETAM
     Dosage: UNK (ONGOING, CHECKED)
     Route: 065
     Dates: start: 20200704
  19. Tavor [Concomitant]
     Dosage: UNK (ONGOING, CHECKED)
     Route: 065
     Dates: start: 20180419
  20. METRONIDAZOLE [Concomitant]
     Active Substance: METRONIDAZOLE
     Indication: Cholecystitis
     Dosage: UNK (ONGOING, CHECKED)
     Route: 065
     Dates: start: 20211102
  21. PANTOPRAZOLE SODIUM [Concomitant]
     Active Substance: PANTOPRAZOLE SODIUM
     Indication: Disorientation
     Dosage: UNK (ONGOING, CHECKED)
     Route: 065
     Dates: start: 20191015

REACTIONS (1)
  - Jaundice [Recovered/Resolved]

NARRATIVE: CASE EVENT DATE: 20210908
